FAERS Safety Report 11987878 (Version 2)
Quarter: 2016Q1

REPORT INFORMATION
  Report Type: Spontaneous
  Country: BR (occurrence: BR)
  Receive Date: 20160202
  Receipt Date: 20160204
  Transmission Date: 20160526
  Serious: Yes (Death, Hospitalization, Other)
  Sender: FDA-Public Use
  Company Number: BR-UCBSA-2016003295

PATIENT
  Sex: Male

DRUGS (1)
  1. CIMZIA [Suspect]
     Active Substance: CERTOLIZUMAB PEGOL
     Indication: RHEUMATOID ARTHRITIS
     Dosage: 400 MG, MONTHLY (QM)
     Dates: start: 201506, end: 201511

REACTIONS (2)
  - Pulmonary oedema [Fatal]
  - Myocardial infarction [Fatal]

NARRATIVE: CASE EVENT DATE: 2015
